FAERS Safety Report 21598015 (Version 1)
Quarter: 2022Q4

REPORT INFORMATION
  Report Type: Report from Study
  Country: CA (occurrence: CA)
  Receive Date: 20221115
  Receipt Date: 20221115
  Transmission Date: 20230113
  Serious: Yes (Other)
  Sender: FDA-Public Use
  Company Number: CA-BAUSCH-BL-2022-024935

PATIENT
  Age: 52 Year
  Sex: Female

DRUGS (6)
  1. CONTRAVE [Suspect]
     Active Substance: BUPROPION HYDROCHLORIDE\NALTREXONE HYDROCHLORIDE
     Indication: Weight control
     Dosage: 90/8MG, FIRST ATTEMPT
     Route: 048
     Dates: start: 2021, end: 2021
  2. CONTRAVE [Suspect]
     Active Substance: BUPROPION HYDROCHLORIDE\NALTREXONE HYDROCHLORIDE
     Dosage: 90/8MG, 4TABS/DAY FIRST ATTEMPT
     Route: 048
     Dates: start: 2021, end: 202102
  3. CONTRAVE [Suspect]
     Active Substance: BUPROPION HYDROCHLORIDE\NALTREXONE HYDROCHLORIDE
     Dosage: 90/8MG, 2-3TABS/DAY (EXACT DOSE UNKNOWN) (2ND ATTEMPT)
     Route: 048
  4. CONTRAVE [Suspect]
     Active Substance: BUPROPION HYDROCHLORIDE\NALTREXONE HYDROCHLORIDE
     Dosage: 90/8MG, 1TAB QAM (3RD ATTEMPT)
     Route: 048
     Dates: start: 20221016, end: 20221022
  5. CONTRAVE [Suspect]
     Active Substance: BUPROPION HYDROCHLORIDE\NALTREXONE HYDROCHLORIDE
     Dosage: 90/8MG, 1TAB QAM, 1TAB QPM (3RD ATTEMPT)
     Route: 048
     Dates: start: 20221023, end: 20221029
  6. CONTRAVE [Suspect]
     Active Substance: BUPROPION HYDROCHLORIDE\NALTREXONE HYDROCHLORIDE
     Dosage: 90/8MG, 2TAB QAM, 1TAB QPM (3RD ATTEMPT) (1 IN 12 HR)
     Route: 048
     Dates: start: 20221030

REACTIONS (4)
  - Hypertension [Recovered/Resolved]
  - Decreased appetite [Unknown]
  - Therapy interrupted [Unknown]
  - Product dose omission issue [Unknown]

NARRATIVE: CASE EVENT DATE: 20210201
